FAERS Safety Report 17459743 (Version 1)
Quarter: 2020Q1

REPORT INFORMATION
  Report Type: Spontaneous
  Country: US (occurrence: US)
  Receive Date: 20200212
  Receipt Date: 20200212
  Transmission Date: 20200409
  Serious: Yes (Hospitalization)
  Sender: FDA-Public Use
  Company Number: None

PATIENT
  Age: 62 Year
  Sex: Female

DRUGS (9)
  1. SAVELLA [Concomitant]
     Active Substance: MILNACIPRAN HYDROCHLORIDE
  2. TALTZ [Suspect]
     Active Substance: IXEKIZUMAB
     Dosage: Q2WEEKS, WEEKS 4,6,8, AND 10?17DEC2019
     Route: 058
     Dates: start: 20191217
  3. METOPROLOL. [Concomitant]
     Active Substance: METOPROLOL
  4. PREMARIN [Concomitant]
     Active Substance: ESTROGENS, CONJUGATED
  5. DYAZIDE [Concomitant]
     Active Substance: HYDROCHLOROTHIAZIDE\TRIAMTERENE
  6. ALLEGRA [Concomitant]
     Active Substance: FEXOFENADINE HYDROCHLORIDE
  7. SUDAFED [Concomitant]
     Active Substance: PSEUDOEPHEDRINE HYDROCHLORIDE
  8. TRAZODONE [Concomitant]
     Active Substance: TRAZODONE HYDROCHLORIDE
  9. SYNTHROID [Concomitant]
     Active Substance: LEVOTHYROXINE SODIUM

REACTIONS (3)
  - Sinusitis [None]
  - Rash [None]
  - Ear infection [None]
